FAERS Safety Report 7584167-2 (Version None)
Quarter: 2011Q2

REPORT INFORMATION
  Report Type: 
  Country: None (occurrence: None)
  Receive Date: 20110628
  Receipt Date: 20110628
  Transmission Date: 20111010
  Serious: Yes (Other)
  Sender: FDA-Public Use
  Company Number: None

PATIENT
  Sex: Female
  Weight: 67.8128 kg

DRUGS (2)
  1. ACYCLOVIR [Suspect]
     Dosage: 400 MG TWICE A DAY
     Dates: start: 20110312
  2. CELLCEPT [Suspect]
     Indication: RENAL TRANSPLANT
     Dosage: 250 MG TWICE A DAY EVERY DAY SINCE

REACTIONS (3)
  - DRUG INTERACTION [None]
  - BK VIRUS INFECTION [None]
  - KIDNEY TRANSPLANT REJECTION [None]
